FAERS Safety Report 16532014 (Version 1)
Quarter: 2019Q3

REPORT INFORMATION
  Report Type: Spontaneous
  Country: US (occurrence: US)
  Receive Date: 20190705
  Receipt Date: 20190705
  Transmission Date: 20191004
  Serious: No
  Sender: FDA-Public Use
  Company Number: US-ELI_LILLY_AND_COMPANY-US201907001543

PATIENT
  Sex: Female

DRUGS (7)
  1. PERCOCET [OXYCODONE HYDROCHLORIDE;OXYCODONE T [Concomitant]
     Active Substance: ACETAMINOPHEN\OXYCODONE HYDROCHLORIDE\OXYCODONE TEREPHTHALATE
     Indication: MIGRAINE
  2. METOPROLOL. [Concomitant]
     Active Substance: METOPROLOL
     Indication: MIGRAINE
  3. AMITRIPTYLINE [Concomitant]
     Active Substance: AMITRIPTYLINE
     Indication: MIGRAINE
  4. EMGALITY [Suspect]
     Active Substance: GALCANEZUMAB-GNLM
     Indication: MIGRAINE
     Dosage: UNK UNK, UNKNOWN
     Route: 058
     Dates: start: 201903
  5. IMITREX [Concomitant]
     Active Substance: SUMATRIPTAN SUCCINATE
     Indication: MIGRAINE
  6. MORPHINE [Concomitant]
     Active Substance: MORPHINE
     Indication: MIGRAINE
  7. LYRICA [Concomitant]
     Active Substance: PREGABALIN
     Indication: MIGRAINE

REACTIONS (1)
  - Injection site pain [Unknown]
